FAERS Safety Report 13079188 (Version 2)
Quarter: 2017Q1

REPORT INFORMATION
  Report Type: Report from Study
  Country: DE (occurrence: DE)
  Receive Date: 20170103
  Receipt Date: 20170113
  Transmission Date: 20170428
  Serious: Yes (Death, Hospitalization, Other)
  Sender: FDA-Public Use
  Company Number: DE-ROCHE-1874346

PATIENT
  Sex: Female

DRUGS (3)
  1. DICLOFENAC [Concomitant]
     Active Substance: DICLOFENAC
     Route: 048
  2. TOCILIZUMAB [Suspect]
     Active Substance: TOCILIZUMAB
     Indication: RHEUMATOID ARTHRITIS
     Dosage: 16-SEP-2016, 23-SEP-2016, 30-SEP-2016, 07-OCT-2016
     Route: 058
     Dates: start: 20160715, end: 20161014
  3. PREDNISOLON [Suspect]
     Active Substance: PREDNISOLONE
     Indication: RHEUMATOID ARTHRITIS
     Route: 048
     Dates: start: 20060222

REACTIONS (7)
  - Multiple organ dysfunction syndrome [Fatal]
  - Febrile infection [Unknown]
  - Septic embolus [Unknown]
  - Staphylococcal sepsis [Fatal]
  - Device related infection [Unknown]
  - Endocarditis [Unknown]
  - Intervertebral discitis [Unknown]

NARRATIVE: CASE EVENT DATE: 20161012
